FAERS Safety Report 6743564-5 (Version None)
Quarter: 2010Q2

REPORT INFORMATION
  Report Type: 
  Country: None (occurrence: None)
  Receive Date: 20100527
  Receipt Date: 20100518
  Transmission Date: 20101027
  Serious: Yes (Death)
  Sender: FDA-Public Use
  Company Number: US-ROCHE-695894

PATIENT
  Sex: Female

DRUGS (2)
  1. IBANDRONIC ACID [Suspect]
     Indication: OSTEOPOROSIS
     Route: 065
  2. CALCIUM CARBONATE [Concomitant]

REACTIONS (2)
  - DEATH [None]
  - OSTEOPOROSIS [None]
